FAERS Safety Report 4407880-4 (Version None)
Quarter: 2004Q3

REPORT INFORMATION
  Report Type: 
  Country: None (occurrence: None)
  Receive Date: 20040721
  Receipt Date: 20040708
  Transmission Date: 20050211
  Serious: Yes (Death)
  Sender: FDA-Public Use
  Company Number: US-JNJFOC-20040702599

PATIENT

DRUGS (1)
  1. ABCIXIMAB (ABCIXIMAB) INJECTION [Suspect]
     Indication: MYOCARDIAL INFARCTION
     Dosage: INTRAVENOUS
     Route: 042

REACTIONS (2)
  - MULTI-ORGAN FAILURE [None]
  - PULMONARY HAEMORRHAGE [None]
